FAERS Safety Report 8593610-1 (Version None)
Quarter: 2012Q3

REPORT INFORMATION
  Report Type: 
  Country: None (occurrence: None)
  Receive Date: 20120814
  Receipt Date: 20120807
  Transmission Date: 20120928
  Serious: Yes (Hospitalization)
  Sender: FDA-Public Use
  Company Number: GB-ROCHE-1099067

PATIENT
  Sex: Female
  Weight: 78 kg

DRUGS (2)
  1. MABTHERA [Suspect]
     Indication: RHEUMATOID ARTHRITIS
     Dates: start: 20070926, end: 20070926
  2. METHOTREXATE [Concomitant]

REACTIONS (1)
  - EPILEPSY [None]
